FAERS Safety Report 8549899-8 (Version None)
Quarter: 2012Q3

REPORT INFORMATION
  Report Type: 
  Country: None (occurrence: None)
  Receive Date: 20120730
  Receipt Date: 20120314
  Transmission Date: 20120928
  Serious: No
  Sender: FDA-Public Use
  Company Number: US-GLAXOSMITHKLINE-A0969744A

PATIENT
  Age: 69 Year
  Sex: Female

DRUGS (8)
  1. PRAVASTATIN [Concomitant]
  2. IMITREX [Suspect]
     Indication: MIGRAINE
     Route: 048
  3. TREXIMET [Suspect]
     Indication: MIGRAINE
     Route: 048
  4. PROTONIX [Concomitant]
  5. IMITREX [Suspect]
     Route: 045
  6. SYNTHROID [Concomitant]
  7. TRICOR [Concomitant]
  8. ASPIRIN [Concomitant]

REACTIONS (14)
  - FATIGUE [None]
  - SOMNOLENCE [None]
  - PAIN IN EXTREMITY [None]
  - PARAESTHESIA [None]
  - MOVEMENT DISORDER [None]
  - FEELING DRUNK [None]
  - NAUSEA [None]
  - PERFORMANCE STATUS DECREASED [None]
  - PRODUCT QUALITY ISSUE [None]
  - SWOLLEN TONGUE [None]
  - ASTHENIA [None]
  - OEDEMA PERIPHERAL [None]
  - PALPITATIONS [None]
  - INFLUENZA LIKE ILLNESS [None]
